FAERS Safety Report 4340979-X (Version None)
Quarter: 2004Q2

REPORT INFORMATION
  Report Type: 
  Country: None (occurrence: None)
  Receive Date: 20040413
  Receipt Date: 20040331
  Transmission Date: 20050107
  Serious: Yes (Hospitalization)
  Sender: FDA-Public Use
  Company Number: 2004PK00611

PATIENT
  Age: 81 Year
  Sex: Male
  Weight: 94 kg

DRUGS (5)
  1. ZOLADEX [Suspect]
     Indication: PROSTATE CANCER
  2. OMEPRAZOLE [Suspect]
     Indication: GASTRITIS
  3. SUPRAMOX [Concomitant]
  4. KLACID [Concomitant]
  5. OMED [Suspect]
     Indication: GASTRITIS

REACTIONS (5)
  - CONDITION AGGRAVATED [None]
  - GASTRITIS EROSIVE [None]
  - GRANULOMA [None]
  - UVEITIS [None]
  - VISUAL DISTURBANCE [None]
